FAERS Safety Report 4868644-0 (Version None)
Quarter: 2005Q4

REPORT INFORMATION
  Report Type: 
  Country: None (occurrence: None)
  Receive Date: 20051223
  Receipt Date: 20051220
  Transmission Date: 20060501
  Serious: Yes (Life-Threatening, Hospitalization)
  Sender: FDA-Public Use
  Company Number: 2005-04891

PATIENT
  Age: 41 Year
  Sex: Male

DRUGS (9)
  1. TESTOSTERONE PROPIONATE [Suspect]
     Dosage: INTRAMUSCULAR
     Route: 030
  2. STANOZOLOL [Suspect]
     Dosage: INTRAMUSCULAR
     Route: 030
  3. FLUOXYMESTERONE (FLUOXYMESTERONE) [Suspect]
     Dosage: INTRAMUSCULAR
     Route: 030
  4. ANASTROZOLE (ANASTROZOLE) [Suspect]
     Dosage: ORAL
     Route: 048
  5. ZEMURON [Suspect]
  6. VERSED [Suspect]
  7. FENTANYL CITRATE [Suspect]
     Indication: INDUCTION OF ANAESTHESIA
     Dosage: INTRAMUSCULAR
     Route: 030
  8. UNKNOWN ANABOLIC-ANDROGENIC STEROID [Suspect]
  9. AMINOGLUTETHIMIDE(AMINOGLUTETHIMIDE) [Suspect]

REACTIONS (5)
  - ANAESTHETIC COMPLICATION CARDIAC [None]
  - CARDIAC ARREST [None]
  - VENTRICULAR HYPERTROPHY [None]
  - VENTRICULAR HYPOKINESIA [None]
  - VENTRICULAR TACHYCARDIA [None]
